FAERS Safety Report 8554109-1 (Version None)
Quarter: 2012Q3

REPORT INFORMATION
  Report Type: 
  Country: None (occurrence: None)
  Receive Date: 20120731
  Receipt Date: 20120724
  Transmission Date: 20120928
  Serious: Yes (Death, Hospitalization)
  Sender: FDA-Public Use
  Company Number: PHHY2012CN062738

PATIENT
  Age: 45 Year
  Sex: Male

DRUGS (1)
  1. SEBIVO [Suspect]
     Indication: HEPATITIS B
     Dosage: 1 DF, DAILY
     Route: 048
     Dates: start: 20111001, end: 20120701

REACTIONS (8)
  - RHABDOMYOLYSIS [None]
  - OEDEMA PERIPHERAL [None]
  - LACTIC ACIDOSIS [None]
  - ASTHENIA [None]
  - METABOLIC ACIDOSIS [None]
  - ACUTE PULMONARY OEDEMA [None]
  - BLOOD CREATINE PHOSPHOKINASE INCREASED [None]
  - RENAL FAILURE ACUTE [None]
